FAERS Safety Report 8941383 (Version 2)
Quarter: 2013Q1

REPORT INFORMATION
  Report Type: Other
  Country: GB (occurrence: GB)
  Receive Date: 20121203
  Receipt Date: 20130329
  Transmission Date: 20140127
  Serious: Yes (Death)
  Sender: FDA-Public Use
  Company Number: GB-WATSON-2012-20677

PATIENT
  Age: 62 Year
  Sex: Male

DRUGS (3)
  1. SIMVASTATIN (UNKNOWN) [Suspect]
     Indication: BLOOD CHOLESTEROL INCREASED
     Dosage: 40 MG, UNKNOWN. DRUG STOPPED WHEN PATIENT DIED
     Route: 048
     Dates: start: 201202, end: 201203
  2. OLANZAPINE [Concomitant]
     Indication: MAJOR DEPRESSION
     Dosage: 15 MG, UNKNOWN
     Route: 048
     Dates: start: 201110
  3. MIRTAZAPINE [Concomitant]
     Indication: MAJOR DEPRESSION
     Dosage: 45 MG, UNKNOWN
     Route: 048
     Dates: start: 201110

REACTIONS (2)
  - Depression [Not Recovered/Not Resolved]
  - Completed suicide [Fatal]
